FAERS Safety Report 22683470 (Version 2)
Quarter: 2024Q4

REPORT INFORMATION
  Report Type: Spontaneous
  Country: US (occurrence: US)
  Receive Date: 20230708
  Receipt Date: 20241224
  Transmission Date: 20250114
  Serious: No
  Sender: AMGEN
  Company Number: US-AMGEN-USASP2023113292

PATIENT
  Age: 18 Year
  Sex: Female

DRUGS (3)
  1. AIMOVIG [Suspect]
     Active Substance: ERENUMAB\ERENUMAB-AOOE
     Indication: Migraine prophylaxis
     Dosage: 70 MILLIGRAM, QMO
     Route: 065
     Dates: start: 2023, end: 2023
  2. AIMOVIG [Suspect]
     Active Substance: ERENUMAB\ERENUMAB-AOOE
     Dosage: 70 MILLIGRAM, QMO (UNSUCCESSFUL ATTEMPT)
     Route: 065
     Dates: start: 20230628
  3. AIMOVIG [Suspect]
     Active Substance: ERENUMAB\ERENUMAB-AOOE
     Dosage: UNK, QMO
     Route: 065

REACTIONS (3)
  - Device difficult to use [Unknown]
  - Drug dose omission by device [Unknown]
  - Headache [Unknown]

NARRATIVE: CASE EVENT DATE: 20230101
